FAERS Safety Report 7876913-5 (Version None)
Quarter: 2011Q4

REPORT INFORMATION
  Report Type: 
  Country: None (occurrence: None)
  Receive Date: 20111031
  Receipt Date: 20111019
  Transmission Date: 20120403
  Serious: Yes (Hospitalization, Other)
  Sender: FDA-Public Use
  Company Number: US-ALEXION-A201101177

PATIENT
  Sex: Female

DRUGS (5)
  1. FOLIC ACID [Concomitant]
     Dosage: 2 MG, QD
  2. PEPCID [Concomitant]
     Dosage: UNK QD
  3. SOLIRIS [Suspect]
     Dosage: 300 MG, UNK
  4. TYLENOL-500 [Concomitant]
     Dosage: UNK, PRN
  5. SOLIRIS [Suspect]
     Indication: PAROXYSMAL NOCTURNAL HAEMOGLOBINURIA
     Dosage: 900 MG, Q2W
     Route: 042
     Dates: start: 20090305

REACTIONS (9)
  - MENSTRUAL DISORDER [None]
  - WHITE BLOOD CELL COUNT DECREASED [None]
  - VAGINAL HAEMORRHAGE [None]
  - DIZZINESS [None]
  - BLOOD GLUCOSE DECREASED [None]
  - BLOOD LACTATE DEHYDROGENASE INCREASED [None]
  - PLATELET COUNT DECREASED [None]
  - ASTHENIA [None]
  - SMEAR CERVIX ABNORMAL [None]
